FAERS Safety Report 4681526-2 (Version None)
Quarter: 2005Q2

REPORT INFORMATION
  Report Type: 
  Country: None (occurrence: None)
  Receive Date: 20050602
  Receipt Date: 20050520
  Transmission Date: 20051028
  Serious: Yes (Other)
  Sender: FDA-Public Use
  Company Number: 2005078478

PATIENT
  Sex: Female

DRUGS (1)
  1. BEXTRA [Suspect]
     Indication: ARTHRITIS
     Dosage: 10 MG (10 MG 1 IN 1 D) ORAL
     Route: 048
     Dates: start: 20030101, end: 20031201

REACTIONS (14)
  - BACTERIA WOUND IDENTIFIED [None]
  - BLISTER [None]
  - CELLULITIS [None]
  - COUGH [None]
  - DRUG INEFFECTIVE [None]
  - FLUID RETENTION [None]
  - NAUSEA [None]
  - OPEN WOUND [None]
  - RASH ERYTHEMATOUS [None]
  - RASH PRURITIC [None]
  - SCAB [None]
  - SWELLING [None]
  - VISION BLURRED [None]
  - WEIGHT FLUCTUATION [None]
